FAERS Safety Report 17231032 (Version 1)
Quarter: 2020Q1

REPORT INFORMATION
  Report Type: Spontaneous
  Country: US (occurrence: US)
  Receive Date: 20200103
  Receipt Date: 20200103
  Transmission Date: 20200409
  Serious: Yes (Other)
  Sender: FDA-Public Use
  Company Number: US-PFIZER INC-2019416963

PATIENT
  Age: 15 Year
  Sex: Male
  Weight: 93.44 kg

DRUGS (6)
  1. HYDROMORPHONE HYDROCHLORIDE. [Suspect]
     Active Substance: HYDROMORPHONE HYDROCHLORIDE
     Dosage: 2.5 MG, UNK (1 MG AT START OF PROCEDURE AND 1 MG 1/2 LATER)
  2. HYDROMORPHONE HYDROCHLORIDE. [Suspect]
     Active Substance: HYDROMORPHONE HYDROCHLORIDE
     Dosage: UNK, UNK  (2 MG/ML; 1 ML VIALS)
  3. HYDROMORPHONE HYDROCHLORIDE. [Suspect]
     Active Substance: HYDROMORPHONE HYDROCHLORIDE
     Indication: ANAESTHESIA
     Dosage: UNK, UNK (2 MG/ML; 1 ML VIALS)
  4. HYDROMORPHONE HYDROCHLORIDE. [Suspect]
     Active Substance: HYDROMORPHONE HYDROCHLORIDE
     Dosage: UNK, UNK  (2 MG/ML; 1 ML VIALS)
  5. HYDROMORPHONE HYDROCHLORIDE. [Suspect]
     Active Substance: HYDROMORPHONE HYDROCHLORIDE
     Dosage: UNK, UNK  (2 MG/ML; 1 ML VIALS)
  6. HYDROMORPHONE HYDROCHLORIDE. [Suspect]
     Active Substance: HYDROMORPHONE HYDROCHLORIDE
     Dosage: 2 MG, UNK [1 MG 7:30 AM, 1 MG 8:00 AM]
     Route: 042
     Dates: start: 20190923

REACTIONS (6)
  - Drug ineffective [Unknown]
  - Off label use [Unknown]
  - Product container issue [Unknown]
  - Suspected product tampering [Unknown]
  - Product use issue [Unknown]
  - Poor quality product administered [Unknown]
